FAERS Safety Report 10161394 (Version 2)
Quarter: 2014Q2

REPORT INFORMATION
  Report Type: Spontaneous
  Country: US (occurrence: US)
  Receive Date: 20140509
  Receipt Date: 20140509
  Transmission Date: 20141212
  Serious: Yes (Other)
  Sender: FDA-Public Use
  Company Number: US-BEH-2013039723

PATIENT
  Sex: Male

DRUGS (4)
  1. IVIG [Suspect]
  2. GAMMAGARD LIQUID [Suspect]
     Route: 058
  3. GAMMAGARD LIQUID [Suspect]
  4. HIZENTRA [Suspect]
     Route: 058

REACTIONS (6)
  - Seizure like phenomena [Unknown]
  - Headache [Recovered/Resolved]
  - Seizure like phenomena [Unknown]
  - Hyperventilation [Unknown]
  - Dyspnoea [Unknown]
  - Chest discomfort [Unknown]
